FAERS Safety Report 20391533 (Version 1)
Quarter: 2022Q1

REPORT INFORMATION
  Report Type: Spontaneous
  Country: US (occurrence: None)
  Receive Date: 20220128
  Receipt Date: 20220128
  Transmission Date: 20220423
  Serious: Yes (Hospitalization)
  Sender: FDA-Public Use
  Company Number: None

PATIENT
  Sex: Female

DRUGS (11)
  1. PULMOZYME [Suspect]
     Active Substance: DORNASE ALFA
     Indication: Infective pulmonary exacerbation of cystic fibrosis
     Dates: start: 20210331
  2. 3ML Syrng mis 23gx1 [Concomitant]
  3. ALBUTEROL AER HFA [Concomitant]
  4. GABAPENTIN SOL [Concomitant]
  5. OXYBUTYNIN SYP [Concomitant]
  6. OXYBUTYNIN TAB [Concomitant]
  7. POLYETHYLENE GLYCOL 3350 [Concomitant]
     Active Substance: POLYETHYLENE GLYCOL 3350
  8. SENNA SYP [Concomitant]
  9. SILACE LIQ [Concomitant]
  10. SODIUM CHLOR NEB [Concomitant]
  11. STERILE INJ WATER [Concomitant]

REACTIONS (1)
  - Infection [None]
